FAERS Safety Report 19880182 (Version 2)
Quarter: 2021Q3

REPORT INFORMATION
  Report Type: Report from Study
  Country: US (occurrence: US)
  Receive Date: 20210925
  Receipt Date: 20210929
  Transmission Date: 20211014
  Serious: No
  Sender: FDA-Public Use
  Company Number: NVSC2021US217420

PATIENT
  Sex: Female

DRUGS (1)
  1. PROMACTA [Suspect]
     Active Substance: ELTROMBOPAG OLAMINE
     Indication: B-CELL SMALL LYMPHOCYTIC LYMPHOMA
     Dosage: 50 MG (TAKE 1 TABLET BY MOUTH DAILY ON AN EMPTY STOMACH 1HR BEFORE OR 2HRS AFTER FOOD.)
     Route: 048

REACTIONS (2)
  - Fatigue [Unknown]
  - Product use in unapproved indication [Unknown]
